FAERS Safety Report 23584997 (Version 7)
Quarter: 2024Q3

REPORT INFORMATION
  Report Type: Spontaneous
  Country: US (occurrence: US)
  Receive Date: 20240301
  Receipt Date: 20240921
  Transmission Date: 20241016
  Serious: Yes (Other)
  Sender: ABBVIE
  Company Number: US-ABBVIE-5657259

PATIENT
  Age: 48 Year
  Sex: Female

DRUGS (1)
  1. LUPRON [Suspect]
     Active Substance: LEUPROLIDE ACETATE
     Indication: Uterine leiomyoma
     Dosage: FORM STRENGTH: 3.75 MILLIGRAM
     Route: 030
     Dates: start: 200301, end: 200306

REACTIONS (42)
  - Cataract [Not Recovered/Not Resolved]
  - Liver injury [Not Recovered/Not Resolved]
  - Injury [Unknown]
  - Alopecia [Not Recovered/Not Resolved]
  - Joint injury [Not Recovered/Not Resolved]
  - Nerve injury [Not Recovered/Not Resolved]
  - Urinary tract infection [Not Recovered/Not Resolved]
  - Toxicity to various agents [Not Recovered/Not Resolved]
  - Pancreatic disorder [Not Recovered/Not Resolved]
  - Atrophy [Not Recovered/Not Resolved]
  - Eye injury [Not Recovered/Not Resolved]
  - Renal injury [Not Recovered/Not Resolved]
  - Nerve compression [Not Recovered/Not Resolved]
  - Hepatic failure [Not Recovered/Not Resolved]
  - Abdominal distension [Not Recovered/Not Resolved]
  - Female reproductive tract disorder [Not Recovered/Not Resolved]
  - Chemical poisoning [Not Recovered/Not Resolved]
  - Ear pruritus [Unknown]
  - Neuropathy peripheral [Not Recovered/Not Resolved]
  - Back pain [Not Recovered/Not Resolved]
  - Hypoaesthesia [Not Recovered/Not Resolved]
  - Burning sensation [Not Recovered/Not Resolved]
  - Uterine prolapse [Not Recovered/Not Resolved]
  - Ear infection [Unknown]
  - Tooth loss [Not Recovered/Not Resolved]
  - Ear inflammation [Not Recovered/Not Resolved]
  - Pain in extremity [Unknown]
  - Eye pain [Not Recovered/Not Resolved]
  - Gastrointestinal injury [Not Recovered/Not Resolved]
  - Spleen disorder [Not Recovered/Not Resolved]
  - Abdominal distension [Not Recovered/Not Resolved]
  - Hormone level abnormal [Not Recovered/Not Resolved]
  - Urinary tract disorder [Not Recovered/Not Resolved]
  - Blindness [Not Recovered/Not Resolved]
  - Osteoporosis [Unknown]
  - Multi-organ disorder [Not Recovered/Not Resolved]
  - Eye inflammation [Not Recovered/Not Resolved]
  - Tissue injury [Not Recovered/Not Resolved]
  - Hair injury [Not Recovered/Not Resolved]
  - Back disorder [Unknown]
  - Pruritus [Not Recovered/Not Resolved]
  - Hepatic enzyme increased [Unknown]

NARRATIVE: CASE EVENT DATE: 20030101
